FAERS Safety Report 8889943 (Version 2)
Quarter: 2012Q4

REPORT INFORMATION
  Report Type: 
  Country: US (occurrence: US)
  Receive Date: 20121107
  Receipt Date: 20121226
  Transmission Date: 20130627
  Serious: Yes (Other)
  Sender: FDA-Public Use
  Company Number: US-PFIZER INC-2012277306

PATIENT
  Age: 55 Year
  Sex: Female
  Weight: 52.15 kg

DRUGS (3)
  1. LYRICA [Suspect]
     Indication: NEURALGIA
     Dosage: 300 mg, 1x/day
     Route: 048
     Dates: start: 201207
  2. LYRICA [Suspect]
     Indication: PAIN
     Dosage: 125 mg, 1x/day, (two 50mg and one 25mg)
     Dates: start: 201212
  3. TRAMADOL [Concomitant]
     Indication: PAIN
     Dosage: 50 mg, 3x/day

REACTIONS (2)
  - Breast cancer female [Unknown]
  - Paraesthesia [Unknown]
